FAERS Safety Report 7714072 (Version 13)
Quarter: 2014Q1

REPORT INFORMATION
  Report Type: Report from Study
  Country: CA (occurrence: CA)
  Receive Date: 20101216
  Receipt Date: 20140307
  Transmission Date: 20141002
  Serious: Yes (Hospitalization, Other)
  Sender: FDA-Public Use
  Company Number: PHHY2009CA47255

PATIENT
  Age: 65 Year
  Sex: Female

DRUGS (5)
  1. SANDOSTATIN LAR [Suspect]
     Indication: METASTATIC CARCINOID TUMOUR
     Dosage: 50 MG, QMO
     Route: 030
     Dates: start: 20061120
  2. BENADRYL [Concomitant]
     Dosage: 25 MG, UNK
  3. PREDNISONE [Concomitant]
  4. ELOCOM [Concomitant]
  5. UREMOL [Concomitant]

REACTIONS (14)
  - Haemorrhage [Unknown]
  - Gastric varices [Unknown]
  - Bronchitis [Unknown]
  - Gastric ulcer [Unknown]
  - Hordeolum [Unknown]
  - Blood pressure diastolic decreased [Unknown]
  - Coeliac disease [Unknown]
  - Erythema [Not Recovered/Not Resolved]
  - Confusional state [Unknown]
  - Sinusitis [Unknown]
  - Gastrointestinal disorder [Unknown]
  - Malaise [Unknown]
  - Injection site pain [Not Recovered/Not Resolved]
  - Asthenia [Unknown]
